FAERS Safety Report 7133172-9 (Version None)
Quarter: 2010Q4

REPORT INFORMATION
  Report Type: 
  Country: None (occurrence: None)
  Receive Date: 20101202
  Receipt Date: 20101129
  Transmission Date: 20110411
  Serious: Yes (Other)
  Sender: FDA-Public Use
  Company Number: DE-ROXANE LABORATORIES, INC.-2010-RO-01557RO

PATIENT
  Age: 26 Year
  Sex: Male
  Weight: 113 kg

DRUGS (2)
  1. MORPHINE [Suspect]
     Route: 048
  2. FENTANYL [Suspect]
     Route: 062

REACTIONS (4)
  - BREATHING-RELATED SLEEP DISORDER [None]
  - HYPERSOMNIA [None]
  - INAPPROPRIATE SCHEDULE OF DRUG ADMINISTRATION [None]
  - SOMNOLENCE [None]
